FAERS Safety Report 6177036-6 (Version None)
Quarter: 2009Q2

REPORT INFORMATION
  Report Type: 
  Country: None (occurrence: None)
  Receive Date: 20090501
  Receipt Date: 20090316
  Transmission Date: 20091009
  Serious: Yes (Life-Threatening, Hospitalization, Other)
  Sender: FDA-Public Use
  Company Number: US-ALEXION-A200900174

PATIENT
  Sex: Female
  Weight: 158.73 kg

DRUGS (6)
  1. SOLIRIS [Suspect]
     Indication: PAROXYSMAL NOCTURNAL HAEMOGLOBINURIA
     Dosage: 600 MG, QWK
     Route: 042
     Dates: start: 20080211
  2. SOLIRIS [Suspect]
     Dosage: 900 MG, SINGLE
     Route: 042
     Dates: start: 20090217, end: 20090217
  3. SOLIRIS [Suspect]
     Dosage: 900 MG, SINGLE
     Route: 042
     Dates: start: 20090304, end: 20090304
  4. SOLIRIS [Suspect]
     Dosage: 900 MG, SINGLE
     Route: 042
     Dates: start: 20090307, end: 20090307
  5. KETOROLAC [Suspect]
     Indication: PAIN
  6. CONTRAST MEDIA [Suspect]
     Indication: COMPUTERISED TOMOGRAM
     Route: 042

REACTIONS (7)
  - CARDIAC ARREST [None]
  - CARDIAC TAMPONADE [None]
  - CATHETER PLACEMENT [None]
  - HAEMOLYSIS [None]
  - PERICARDITIS [None]
  - PNEUMONIA MYCOPLASMAL [None]
  - RENAL TUBULAR NECROSIS [None]
